FAERS Safety Report 10275346 (Version 3)
Quarter: 2014Q3

REPORT INFORMATION
  Report Type: Spontaneous
  Country: IT (occurrence: IT)
  Receive Date: 20140703
  Receipt Date: 20140904
  Transmission Date: 20150326
  Serious: Yes (Other)
  Sender: FDA-Public Use
  Company Number: IT-009507513-1406ITA011158

PATIENT
  Age: 79 Year
  Sex: Female

DRUGS (6)
  1. MIRTAZAPINE. [Suspect]
     Active Substance: MIRTAZAPINE
     Dosage: TOTAL DAILY DOSE: 15 MG
     Route: 048
     Dates: start: 20110918, end: 20110925
  2. SEREUPIN [Concomitant]
     Active Substance: PAROXETINE HYDROCHLORIDE
     Route: 048
  3. HYDROCHLOROTHIAZIDE\VALSARTAN [Concomitant]
     Active Substance: HYDROCHLOROTHIAZIDE\VALSARTAN
  4. ZYPREXA [Suspect]
     Active Substance: OLANZAPINE
     Dosage: 2 POSOLOGICAL UNITS
     Route: 048
     Dates: start: 20110918, end: 20110925
  5. LORANS [Concomitant]
     Active Substance: LORAZEPAM
     Route: 048
  6. SIVASTIN [Concomitant]
     Active Substance: SIMVASTATIN
     Route: 048

REACTIONS (2)
  - Loss of consciousness [Recovering/Resolving]
  - Autonomic nervous system imbalance [Recovering/Resolving]

NARRATIVE: CASE EVENT DATE: 20110920
